FAERS Safety Report 4762167-5 (Version None)
Quarter: 2005Q3

REPORT INFORMATION
  Report Type: 
  Country: None (occurrence: None)
  Receive Date: 20050906
  Receipt Date: 20050906
  Transmission Date: 20060218
  Serious: Yes (Life-Threatening, Disabling)
  Sender: FDA-Public Use
  Company Number: None

PATIENT
  Age: 52 Year
  Sex: Female
  Weight: 56.6996 kg

DRUGS (5)
  1. EFFEXOR [Suspect]
     Indication: MAJOR DEPRESSION
     Dosage: 150 MG   2X/DAY, AM AND PM     PO
     Route: 048
     Dates: start: 20020807, end: 20050514
  2. VALIUM [Concomitant]
  3. FLEXERIL [Concomitant]
  4. ADVIL [Concomitant]
  5. TYLENOL [Concomitant]

REACTIONS (22)
  - ANXIETY [None]
  - ATHEROSCLEROSIS [None]
  - BLOOD CHOLESTEROL ABNORMAL [None]
  - CAROTID ARTERY DISEASE [None]
  - CEREBROVASCULAR ACCIDENT [None]
  - CHILLS [None]
  - CONDITION AGGRAVATED [None]
  - CONFUSIONAL STATE [None]
  - CRYING [None]
  - DISTURBANCE IN ATTENTION [None]
  - DRUG DEPENDENCE [None]
  - DRUG WITHDRAWAL SYNDROME [None]
  - IMPAIRED WORK ABILITY [None]
  - MEMORY IMPAIRMENT [None]
  - MUSCLE SPASMS [None]
  - MYOFASCIAL PAIN SYNDROME [None]
  - NAUSEA [None]
  - NERVE COMPRESSION [None]
  - SEROTONIN SYNDROME [None]
  - SPINAL OSTEOARTHRITIS [None]
  - TREMOR [None]
  - VOMITING [None]
